FAERS Safety Report 9839215 (Version 2)
Quarter: 2014Q1

REPORT INFORMATION
  Report Type: Report from Study
  Country: US (occurrence: US)
  Receive Date: 20140123
  Receipt Date: 20140130
  Transmission Date: 20141002
  Serious: Yes (Hospitalization, Other)
  Sender: FDA-Public Use
  Company Number: US-BAXTER-2014BAX002733

PATIENT
  Age: 1 Year
  Sex: Male
  Weight: 14 kg

DRUGS (2)
  1. GAMMAGARD LIQUID [Suspect]
     Indication: PRIMARY IMMUNODEFICIENCY SYNDROME
     Route: 042
     Dates: start: 20131207, end: 20131207
  2. GAMMAGARD LIQUID [Suspect]
     Route: 042
     Dates: start: 20140109, end: 20140109

REACTIONS (4)
  - Infection [Recovering/Resolving]
  - Pneumonia [Recovering/Resolving]
  - Lung infection [Recovering/Resolving]
  - Bacterial test positive [Recovering/Resolving]
